FAERS Safety Report 16048309 (Version 1)
Quarter: 2019Q1

REPORT INFORMATION
  Report Type: Report from Study
  Country: AU (occurrence: AU)
  Receive Date: 20190307
  Receipt Date: 20190307
  Transmission Date: 20190418
  Serious: Yes (Other)
  Sender: FDA-Public Use
  Company Number: AU-JNJFOC-20190103650

PATIENT
  Age: 14 Year
  Sex: Male
  Weight: 48.7 kg

DRUGS (1)
  1. REMICADE [Suspect]
     Active Substance: INFLIXIMAB
     Indication: CROHN^S DISEASE
     Route: 042
     Dates: start: 201901

REACTIONS (3)
  - Insomnia [Not Recovered/Not Resolved]
  - Rash erythematous [Not Recovered/Not Resolved]
  - Abdominal discomfort [Unknown]

NARRATIVE: CASE EVENT DATE: 2019
